FAERS Safety Report 8966595 (Version 1)
Quarter: 2012Q4

REPORT INFORMATION
  Report Type: 
  Country: US (occurrence: US)
  Receive Date: 20121217
  Receipt Date: 20121217
  Transmission Date: 20130627
  Serious: No
  Sender: FDA-Public Use
  Company Number: US-PFIZER INC-2012318520

PATIENT
  Age: 60 Year
  Sex: Male
  Weight: 124.72 kg

DRUGS (6)
  1. LIPITOR [Suspect]
     Indication: BLOOD CHOLESTEROL ABNORMAL
     Dosage: 10 mg, daily
     Dates: start: 2012, end: 201211
  2. METFORMIN [Concomitant]
     Indication: DIABETES
     Dosage: 500 mg, 2x/day
  3. GLIPIZIDE [Concomitant]
     Indication: DIABETES
     Dosage: 5 mg, 2x/day
  4. LYRICA [Concomitant]
     Indication: NEUROPATHY
     Dosage: 75 mg, 2x/day
  5. GABAPENTIN [Concomitant]
     Indication: NEUROPATHY
     Dosage: 600 mg, 2x/day
  6. METOPROLOL [Concomitant]
     Indication: BLOOD PRESSURE HIGH
     Dosage: 50 mg, 2x/day

REACTIONS (2)
  - Hypersensitivity [Recovered/Resolved]
  - Dizziness [Recovered/Resolved]
